FAERS Safety Report 12755983 (Version 2)
Quarter: 2016Q3

REPORT INFORMATION
  Report Type: Report from Study
  Country: DE (occurrence: DE)
  Receive Date: 20160916
  Receipt Date: 20160921
  Transmission Date: 20161109
  Serious: Yes (Death)
  Sender: FDA-Public Use
  Company Number: GXKR2016DE004186

PATIENT
  Age: 77 Year
  Sex: Male
  Weight: 87 kg

DRUGS (8)
  1. LANTUS [Concomitant]
     Active Substance: INSULIN GLARGINE
     Indication: TYPE 2 DIABETES MELLITUS
     Dosage: 30 IU, QD
     Route: 058
  2. AMLODIPINE [Concomitant]
     Active Substance: AMLODIPINE BESYLATE
     Indication: HYPERTENSION
     Dosage: 5 MG, QD
     Route: 048
  3. SIMVASTATIN. [Concomitant]
     Active Substance: SIMVASTATIN
     Indication: HYPERCHOLESTEROLAEMIA
     Dosage: 20 MG, QD
     Route: 048
  4. METOPROLOL. [Concomitant]
     Active Substance: METOPROLOL
     Indication: HYPERTENSION
     Dosage: 47.5 MG, QD
  5. RAMIPRIL. [Concomitant]
     Active Substance: RAMIPRIL
     Indication: HYPERTENSION
     Dosage: 5 MG, QD
     Route: 048
  6. FILGRASTIM [Suspect]
     Active Substance: FILGRASTIM
     Indication: PROPHYLAXIS
     Dosage: 30 MIU, QD
     Route: 058
     Dates: start: 20141030, end: 20141130
  7. FUROSEMIDE. [Concomitant]
     Active Substance: FUROSEMIDE
     Indication: CARDIAC FAILURE
     Dosage: 100 MG, QD
     Route: 048
  8. ACTRAPID [Concomitant]
     Active Substance: INSULIN HUMAN
     Indication: TYPE 2 DIABETES MELLITUS
     Dosage: ACCORDING TO BLOOD GLUCOSE, TID
     Route: 058

REACTIONS (4)
  - Myocardial infarction [Fatal]
  - Circulatory collapse [Fatal]
  - Chest pain [Fatal]
  - Cardiogenic shock [Fatal]

NARRATIVE: CASE EVENT DATE: 20141212
